FAERS Safety Report 25822007 (Version 1)
Quarter: 2025Q3

REPORT INFORMATION
  Report Type: Spontaneous
  Country: EU (occurrence: EU)
  Receive Date: 20250919
  Receipt Date: 20250919
  Transmission Date: 20251021
  Serious: Yes (Other)
  Sender: ORPHALAN
  Company Number: EU-ORPHALAN-FR-ORP-25-00216

PATIENT

DRUGS (1)
  1. TRIENTINE TETRAHYDROCHLORIDE [Suspect]
     Active Substance: TRIENTINE TETRAHYDROCHLORIDE
     Indication: Hepato-lenticular degeneration
     Dosage: ONCE AT NIGHT 600 MG
     Route: 065

REACTIONS (6)
  - Dystonia [Not Recovered/Not Resolved]
  - Chorea [Recovering/Resolving]
  - Blood copper decreased [Unknown]
  - Blood copper increased [Unknown]
  - Urine copper increased [Unknown]
  - Off label use [Unknown]
